FAERS Safety Report 5820121-6 (Version None)
Quarter: 2008Q3

REPORT INFORMATION
  Report Type: 
  Country: None (occurrence: None)
  Receive Date: 20080721
  Receipt Date: 20080711
  Transmission Date: 20090109
  Serious: Yes (Other)
  Sender: FDA-Public Use
  Company Number: CHPA2008US11688

PATIENT
  Sex: Female

DRUGS (1)
  1. LAMISIL AT [Suspect]
     Indication: FUNGAL INFECTION
     Dosage: TOPICAL
     Route: 061

REACTIONS (4)
  - DRUG INEFFECTIVE [None]
  - INFECTION [None]
  - OSTEOMYELITIS [None]
  - TOE AMPUTATION [None]
